FAERS Safety Report 11102975 (Version 2)
Quarter: 2015Q2

REPORT INFORMATION
  Report Type: Report from Study
  Country: US (occurrence: US)
  Receive Date: 20150511
  Receipt Date: 20150615
  Transmission Date: 20150821
  Serious: Yes (Life-Threatening, Hospitalization, Other)
  Sender: FDA-Public Use
  Company Number: US-JNJFOC-20150502220

PATIENT
  Age: 55 Year
  Sex: Male
  Weight: 115.21 kg

DRUGS (4)
  1. STELARA [Suspect]
     Active Substance: USTEKINUMAB
     Indication: PSORIATIC ARTHROPATHY
     Route: 058
     Dates: start: 20150109
  2. STELARA [Suspect]
     Active Substance: USTEKINUMAB
     Indication: PSORIATIC ARTHROPATHY
     Route: 058
     Dates: start: 20121205, end: 201307
  3. STELARA [Suspect]
     Active Substance: USTEKINUMAB
     Indication: PSORIASIS
     Route: 058
     Dates: start: 20121205, end: 201307
  4. STELARA [Suspect]
     Active Substance: USTEKINUMAB
     Indication: PSORIASIS
     Route: 058
     Dates: start: 20150109

REACTIONS (7)
  - Streptococcal sepsis [Unknown]
  - Fatigue [Unknown]
  - Meningitis streptococcal [Recovering/Resolving]
  - Spinal cord abscess [Recovering/Resolving]
  - Hypersomnia [Unknown]
  - Cellulitis [Unknown]
  - Psoriasis [Unknown]

NARRATIVE: CASE EVENT DATE: 20150313
